FAERS Safety Report 14781908 (Version 1)
Quarter: 2018Q2

REPORT INFORMATION
  Report Type: Spontaneous
  Country: FR (occurrence: FR)
  Receive Date: 20180420
  Receipt Date: 20180420
  Transmission Date: 20180711
  Serious: Yes (Other)
  Sender: FDA-Public Use
  Company Number: FR-MERCK KGAA-2046110

PATIENT
  Age: 69 Year
  Sex: Female

DRUGS (1)
  1. NOVOTHYROX [Suspect]
     Active Substance: LEVOTHYROXINE SODIUM
     Indication: THYROID DISORDER
     Dates: start: 20170501, end: 20170915

REACTIONS (23)
  - Decreased interest [Recovered/Resolved]
  - Fear of disease [Recovered/Resolved]
  - Insomnia [Recovered/Resolved]
  - Loss of libido [Recovered/Resolved]
  - Pruritus [Recovered/Resolved]
  - Oedema peripheral [Recovered/Resolved]
  - Eye burns [Recovered/Resolved]
  - Depressed mood [Recovered/Resolved]
  - Self esteem decreased [Recovered/Resolved]
  - Hyperhidrosis [Recovered/Resolved]
  - Impaired driving ability [Recovered/Resolved]
  - Swelling [Recovered/Resolved]
  - Spinal compression fracture [Recovered/Resolved]
  - Crying [Recovered/Resolved]
  - Fear of falling [Recovered/Resolved]
  - Malaise [Recovered/Resolved]
  - Social problem [Recovered/Resolved]
  - Fall [Recovered/Resolved]
  - Face oedema [Recovered/Resolved]
  - Suicidal ideation [Recovered/Resolved]
  - Fatigue [Recovered/Resolved]
  - Affective disorder [Recovered/Resolved]
  - Hot flush [Recovered/Resolved]

NARRATIVE: CASE EVENT DATE: 2017
